FAERS Safety Report 21555562 (Version 1)
Quarter: 2022Q4

REPORT INFORMATION
  Report Type: Spontaneous
  Country: US (occurrence: US)
  Receive Date: 20221104
  Receipt Date: 20221104
  Transmission Date: 20230113
  Serious: Yes (Hospitalization, Other)
  Sender: FDA-Public Use
  Company Number: US-BIOVITRUM-2022US09198

PATIENT
  Age: 78 Year
  Sex: Male

DRUGS (1)
  1. KINERET [Suspect]
     Active Substance: ANAKINRA
     Indication: Immune system disorder
     Dates: start: 20190605

REACTIONS (7)
  - Pneumonia [Unknown]
  - Balance disorder [Unknown]
  - Gait disturbance [Unknown]
  - Injection site pain [Unknown]
  - Injection site scar [Unknown]
  - Device issue [Unknown]
  - Off label use [Not Recovered/Not Resolved]

NARRATIVE: CASE EVENT DATE: 20190605
